FAERS Safety Report 21728900 (Version 1)
Quarter: 2022Q4

REPORT INFORMATION
  Report Type: Spontaneous
  Country: US (occurrence: US)
  Receive Date: 20221214
  Receipt Date: 20221214
  Transmission Date: 20230113
  Serious: No
  Sender: FDA-Public Use
  Company Number: US-ALLERGAN-2202826US

PATIENT
  Age: 93 Year
  Sex: Male

DRUGS (2)
  1. DALVANCE [Suspect]
     Active Substance: DALBAVANCIN
     Indication: Localised infection
     Dosage: 1000 MG, SINGLE
     Route: 042
     Dates: start: 20220114, end: 20220114
  2. DALVANCE [Suspect]
     Active Substance: DALBAVANCIN
     Indication: Osteomyelitis

REACTIONS (3)
  - Abdominal tenderness [Unknown]
  - Off label use [Unknown]
  - Abdominal pain upper [Unknown]

NARRATIVE: CASE EVENT DATE: 20220114
